FAERS Safety Report 20960325 (Version 1)
Quarter: 2022Q2

REPORT INFORMATION
  Report Type: Spontaneous
  Country: FR (occurrence: FR)
  Receive Date: 20220615
  Receipt Date: 20220615
  Transmission Date: 20220721
  Serious: Yes (Death, Hospitalization, Other)
  Sender: FDA-Public Use
  Company Number: FR-IPCA LABORATORIES LIMITED-IPC-2022-FR-000700

PATIENT

DRUGS (4)
  1. TRAMADOL HYDROCHLORIDE [Suspect]
     Active Substance: TRAMADOL HYDROCHLORIDE
     Indication: Product used for unknown indication
     Dosage: 9000 MILLIGRAM
     Route: 048
  2. AMITRIPTYLINE [Concomitant]
     Active Substance: AMITRIPTYLINE
     Indication: Product used for unknown indication
     Dosage: UNK
     Route: 065
  3. LORMETAZEPAM [Concomitant]
     Active Substance: LORMETAZEPAM
     Indication: Product used for unknown indication
     Dosage: UNK
     Route: 065
  4. GABAPENTIN [Concomitant]
     Active Substance: GABAPENTIN
     Indication: Product used for unknown indication
     Dosage: UNK
     Route: 065

REACTIONS (16)
  - Coma [Fatal]
  - Eyelid myoclonus [Fatal]
  - Mydriasis [Fatal]
  - Encephalopathy [Fatal]
  - Brain injury [Fatal]
  - Condition aggravated [Fatal]
  - Miosis [Fatal]
  - Pneumonia aspiration [Fatal]
  - Brain death [Fatal]
  - Ventricular enlargement [Fatal]
  - Cerebral vasoconstriction [Fatal]
  - Cytotoxic oedema [Fatal]
  - Cerebral infarction [Fatal]
  - Cerebral haemorrhage [Fatal]
  - Toxicity to various agents [Fatal]
  - Overdose [Fatal]
